FAERS Safety Report 16265053 (Version 3)
Quarter: 2019Q4

REPORT INFORMATION
  Report Type: Spontaneous
  Country: CA (occurrence: CA)
  Receive Date: 20190502
  Receipt Date: 20191011
  Transmission Date: 20200122
  Serious: Yes (Other)
  Sender: FDA-Public Use
  Company Number: CA-BAYER-2019-086741

PATIENT
  Sex: Female

DRUGS (2)
  1. RESTORALAX [Suspect]
     Active Substance: POLYETHYLENE GLYCOL 3350
     Dosage: UNK
     Dates: start: 2017
  2. CONSTELLA [Concomitant]
     Active Substance: LINACLOTIDE

REACTIONS (3)
  - Constipation [None]
  - Weight increased [None]
  - Ovarian cyst [None]
